FAERS Safety Report 17168239 (Version 1)
Quarter: 2019Q4

REPORT INFORMATION
  Report Type: Spontaneous
  Country: IN (occurrence: IN)
  Receive Date: 20191218
  Receipt Date: 20191218
  Transmission Date: 20200122
  Serious: No
  Sender: FDA-Public Use
  Company Number: IN-ALKEM LABORATORIES LIMITED-IN-ALKEM-2019-08117

PATIENT
  Age: 14 Year
  Sex: Female

DRUGS (4)
  1. ARIPIPRAZOLE. [Suspect]
     Active Substance: ARIPIPRAZOLE
     Indication: MANIA
     Dosage: 10 MILLIGRAM
     Route: 065
  2. CARBAMAZEPINE. [Concomitant]
     Active Substance: CARBAMAZEPINE
     Indication: PARTIAL SEIZURES
     Dosage: 600 MILLIGRAM, QD
     Route: 065
  3. QUETIAPINE FUMARATE. [Suspect]
     Active Substance: QUETIAPINE FUMARATE
     Indication: MANIA
     Dosage: 400 MILLIGRAM
     Route: 065
  4. CLOBAZAM. [Suspect]
     Active Substance: CLOBAZAM
     Indication: SEIZURE
     Dosage: 10 MILLIGRAM
     Route: 065

REACTIONS (3)
  - Parkinsonism [Recovering/Resolving]
  - Drug intolerance [Unknown]
  - Paradoxical drug reaction [Recovering/Resolving]
